FAERS Safety Report 19870264 (Version 3)
Quarter: 2021Q4

REPORT INFORMATION
  Report Type: Report from Study
  Country: BR (occurrence: BR)
  Receive Date: 20210922
  Receipt Date: 20211122
  Transmission Date: 20220304
  Serious: Yes (Death, Life-Threatening, Hospitalization, Other)
  Sender: FDA-Public Use
  Company Number: BR-002147023-NVSC2021BR206380

PATIENT

DRUGS (2)
  1. RUXOLITINIB [Suspect]
     Active Substance: RUXOLITINIB
     Indication: Myelofibrosis
     Dosage: 20 MG, QD (4 TABLETS OF 5 MG)
     Route: 048
     Dates: start: 20210719, end: 20210907
  2. RUXOLITINIB [Suspect]
     Active Substance: RUXOLITINIB
     Dosage: 20 MG, QD (10 MG MORNING AND 10 MG NIGHT)
     Route: 048
     Dates: start: 20210719, end: 20210907

REACTIONS (11)
  - Abdominal pain [Not Recovered/Not Resolved]
  - Haemorrhage [Unknown]
  - Death [Fatal]
  - Hepatomegaly [Unknown]
  - Splenomegaly [Unknown]
  - Immunodeficiency [Unknown]
  - Inappropriate schedule of product administration [Unknown]
  - Platelet count decreased [Unknown]
  - Product availability issue [Unknown]
  - Abdominal pain upper [Not Recovered/Not Resolved]
  - Urinary tract infection [Not Recovered/Not Resolved]

NARRATIVE: CASE EVENT DATE: 20210101
